FAERS Safety Report 12226140 (Version 1)
Quarter: 2016Q1

REPORT INFORMATION
  Report Type: Report from Study
  Country: CA (occurrence: CA)
  Receive Date: 20160331
  Receipt Date: 20160331
  Transmission Date: 20160526
  Serious: Yes (Hospitalization, Other)
  Sender: FDA-Public Use
  Company Number: PHHY2016CA038350

PATIENT
  Age: 76 Year
  Sex: Male

DRUGS (3)
  1. AFINITOR [Suspect]
     Active Substance: EVEROLIMUS
     Indication: METASTATIC RENAL CELL CARCINOMA
     Dosage: 10 MG, QD
     Route: 048
  2. SYNTHROID [Concomitant]
     Active Substance: LEVOTHYROXINE SODIUM
     Indication: PRODUCT USED FOR UNKNOWN INDICATION
     Route: 065
  3. VOTRIENT [Suspect]
     Active Substance: PAZOPANIB HYDROCHLORIDE
     Indication: METASTATIC RENAL CELL CARCINOMA
     Route: 048

REACTIONS (9)
  - Constipation [Unknown]
  - Pneumonia [Unknown]
  - Neoplasm malignant [Unknown]
  - Metastasis [Unknown]
  - Bladder disorder [Unknown]
  - Metastases to lymph nodes [Unknown]
  - Tongue blistering [Unknown]
  - Blood sodium decreased [Unknown]
  - Metastases to lung [Unknown]

NARRATIVE: CASE EVENT DATE: 201603
